FAERS Safety Report 15323281 (Version 2)
Quarter: 2018Q4

REPORT INFORMATION
  Report Type: Report from Study
  Country: US (occurrence: US)
  Receive Date: 20180827
  Receipt Date: 20181121
  Transmission Date: 20190204
  Serious: Yes (Hospitalization, Other)
  Sender: FDA-Public Use
  Company Number: US-ACTELION-A-NJ2017-159368

PATIENT
  Age: 73 Year
  Sex: Male
  Weight: 87.53 kg

DRUGS (6)
  1. UPTRAVI [Suspect]
     Active Substance: SELEXIPAG
     Indication: PULMONARY ARTERIAL HYPERTENSION
     Dosage: 400 MCG, BID
     Route: 048
  2. ADCIRCA [Concomitant]
     Active Substance: TADALAFIL
  3. LETAIRIS [Concomitant]
     Active Substance: AMBRISENTAN
  4. UPTRAVI [Suspect]
     Active Substance: SELEXIPAG
     Dosage: 200 MCG, BID
     Route: 048
  5. ADEMPAS [Concomitant]
     Active Substance: RIOCIGUAT
  6. TYVASO [Concomitant]
     Active Substance: TREPROSTINIL

REACTIONS (11)
  - Nausea [Unknown]
  - Colon cancer [Unknown]
  - Decreased appetite [Unknown]
  - Contusion [Unknown]
  - Pulmonary hypertension [Unknown]
  - Pain in extremity [Unknown]
  - Drug titration error [Unknown]
  - Diarrhoea [Unknown]
  - Pain [Unknown]
  - Headache [Unknown]
  - Myalgia [Unknown]
